FAERS Safety Report 8319181-2 (Version None)
Quarter: 2012Q2

REPORT INFORMATION
  Report Type: 
  Country: None (occurrence: None)
  Receive Date: 20120427
  Receipt Date: 20120424
  Transmission Date: 20120825
  Serious: Yes (Hospitalization)
  Sender: FDA-Public Use
  Company Number: US-MERCK-1202USA00049

PATIENT
  Age: 60 Year
  Sex: Female

DRUGS (2)
  1. FOSAMAX PLUS D [Suspect]
     Indication: OSTEOPENIA
     Route: 048
     Dates: start: 20050101, end: 20100101
  2. FOSAMAX [Suspect]
     Route: 048

REACTIONS (5)
  - GASTROINTESTINAL DISORDER [None]
  - DEPRESSION [None]
  - BONE DISORDER [None]
  - HIP FRACTURE [None]
  - TOOTH DISORDER [None]
